FAERS Safety Report 6720366-7 (Version None)
Quarter: 2010Q2

REPORT INFORMATION
  Report Type: 
  Country: None (occurrence: None)
  Receive Date: 20100511
  Receipt Date: 20100503
  Transmission Date: 20101027
  Serious: Yes (Other)
  Sender: FDA-Public Use
  Company Number: US-PFIZER INC-2010056245

PATIENT

DRUGS (1)
  1. LIPITOR [Suspect]

REACTIONS (1)
  - THROMBOCYTOPENIA [None]
